FAERS Safety Report 19096469 (Version 1)
Quarter: 2021Q2

REPORT INFORMATION
  Report Type: Spontaneous
  Country: US (occurrence: US)
  Receive Date: 20210405
  Receipt Date: 20210405
  Transmission Date: 20210717
  Serious: Yes (Other)
  Sender: FDA-Public Use
  Company Number: None

PATIENT
  Age: 62 Year
  Sex: Male
  Weight: 121.95 kg

DRUGS (8)
  1. QUETIAPINE FUMARATE 100MG [Concomitant]
  2. METOPROLOL XR 25MG [Concomitant]
  3. SINGULAIR [Concomitant]
     Active Substance: MONTELUKAST SODIUM
  4. TELMISARTAN  MYCARDIS 40MG [Concomitant]
  5. ATORVASTATIN 80MG [Concomitant]
     Active Substance: ATORVASTATIN
  6. SINGULAIR [Suspect]
     Active Substance: MONTELUKAST SODIUM
     Indication: RHINITIS ALLERGIC
     Dosage: ?          QUANTITY:1 TABLET(S);?
     Route: 048
     Dates: start: 20201220, end: 20210405
  7. ASPIRIN 81MG [Concomitant]
     Active Substance: ASPIRIN
  8. MULTIVITAMIN FOR SENIORS [Concomitant]

REACTIONS (4)
  - Emotional disorder [None]
  - Anger [None]
  - Depression [None]
  - Anxiety [None]

NARRATIVE: CASE EVENT DATE: 20210404
